FAERS Safety Report 25643251 (Version 1)
Quarter: 2025Q3

REPORT INFORMATION
  Report Type: Spontaneous
  Country: CN (occurrence: CN)
  Receive Date: 20250805
  Receipt Date: 20250805
  Transmission Date: 20251021
  Serious: Yes (Other)
  Sender: SANDOZ
  Company Number: CN-002147023-NVSC2025CN120944

PATIENT
  Age: 56 Year
  Sex: Female
  Weight: 65 kg

DRUGS (1)
  1. DEXAMETHASONE\TOBRAMYCIN [Suspect]
     Active Substance: DEXAMETHASONE\TOBRAMYCIN
     Indication: Antiinflammatory therapy
     Dosage: 0.1 G, QD (PASTE)
     Route: 047
     Dates: start: 20250406, end: 20250513

REACTIONS (8)
  - Corneal opacity [Recovered/Resolved]
  - Abnormal sensation in eye [Recovered/Resolved]
  - Photophobia [Recovered/Resolved]
  - Vital dye staining cornea present [Recovered/Resolved]
  - Corneal erosion [Recovered/Resolved]
  - Vision blurred [Recovered/Resolved]
  - Lacrimation increased [Recovered/Resolved]
  - Ocular hyperaemia [Recovered/Resolved]

NARRATIVE: CASE EVENT DATE: 20250513
